FAERS Safety Report 5417649-X (Version None)
Quarter: 2007Q3

REPORT INFORMATION
  Report Type: 
  Country: None (occurrence: None)
  Receive Date: 20070718
  Receipt Date: 20070410
  Transmission Date: 20080115
  Serious: Yes (Death)
  Sender: FDA-Public Use
  Company Number: 2006106238

PATIENT
  Age: 61 Year
  Sex: Male

DRUGS (2)
  1. CELEBREX [Suspect]
     Indication: PAIN
     Dosage: (200 MG, 1- 2 TIMES DAILY)
     Dates: start: 20040923, end: 20041002
  2. VIOXX [Suspect]
     Dates: start: 20040915, end: 20040925

REACTIONS (1)
  - MYOCARDIAL INFARCTION [None]
